FAERS Safety Report 8578690-1 (Version None)
Quarter: 2012Q3

REPORT INFORMATION
  Report Type: 
  Country: None (occurrence: None)
  Receive Date: 20120808
  Receipt Date: 20120806
  Transmission Date: 20120928
  Serious: Yes (Hospitalization, Other)
  Sender: FDA-Public Use
  Company Number: PHHO2012DE006760

PATIENT
  Sex: Male
  Weight: 76.6 kg

DRUGS (8)
  1. PREDNISONE [Suspect]
     Dosage: 15 MG, QD
     Route: 048
  2. THYMOGLOBULIN [Suspect]
     Dosage: 75 MG, QD
     Route: 042
     Dates: start: 20120518
  3. SIMULECT [Concomitant]
     Indication: RENAL TRANSPLANT
     Dosage: 20 MG, UNK
     Route: 042
     Dates: start: 20120318
  4. PROGRAF [Suspect]
     Dosage: 1.5-0-2.0MG
     Route: 048
  5. PREDNISONE [Suspect]
     Indication: RENAL TRANSPLANT
     Dosage: 20 MG, QD
     Route: 048
     Dates: start: 20120319, end: 20120502
  6. PROGRAF [Suspect]
     Indication: RENAL TRANSPLANT
     Dosage: 1.5-0-1MG
     Route: 048
     Dates: start: 20120318, end: 20120427
  7. MYFORTIC [Suspect]
     Indication: RENAL TRANSPLANT
     Dosage: 360 MG, BID
     Route: 048
     Dates: start: 20120318, end: 20120502
  8. MYFORTIC [Suspect]
     Dosage: 360 MG, BID
     Route: 048

REACTIONS (3)
  - WOUND INFECTION STAPHYLOCOCCAL [None]
  - KIDNEY TRANSPLANT REJECTION [None]
  - ATRIAL FIBRILLATION [None]
